FAERS Safety Report 11895142 (Version 3)
Quarter: 2016Q4

REPORT INFORMATION
  Report Type: Spontaneous
  Country: US (occurrence: US)
  Receive Date: 20160107
  Receipt Date: 20161209
  Transmission Date: 20170206
  Serious: No
  Sender: FDA-Public Use
  Company Number: US-PFIZER INC-2015447867

PATIENT
  Age: 59 Year
  Sex: Female
  Weight: 72.57 kg

DRUGS (7)
  1. LYRICA [Suspect]
     Active Substance: PREGABALIN
     Dosage: 100 MG, 2X/DAY
     Route: 048
     Dates: start: 2013
  2. NIACIN. [Concomitant]
     Active Substance: NIACIN
     Dosage: UNK
     Dates: start: 2015
  3. SUMATRIPTAN. [Concomitant]
     Active Substance: SUMATRIPTAN
     Indication: MIGRAINE
     Dosage: 100 MG, AS NEEDED
  4. LYRICA [Suspect]
     Active Substance: PREGABALIN
     Indication: FIBROMYALGIA
     Dosage: 100 MG, 2X/DAY
     Route: 048
  5. RED YEAST RICE [Concomitant]
     Active Substance: DIETARY SUPPLEMENT
     Indication: BLOOD CHOLESTEROL ABNORMAL
     Dosage: UNK
     Dates: start: 2012
  6. LYRICA [Suspect]
     Active Substance: PREGABALIN
     Dosage: 100 MG, 2X/DAY
     Route: 048
  7. IMITREX [Concomitant]
     Active Substance: SUMATRIPTAN SUCCINATE
     Indication: MIGRAINE
     Dosage: 100 MG, AS NEEDED
     Dates: start: 2010

REACTIONS (11)
  - Intentional product misuse [Unknown]
  - Fibromyalgia [Unknown]
  - Condition aggravated [Unknown]
  - Intentional underdose [Unknown]
  - Condition aggravated [Not Recovered/Not Resolved]
  - Movement disorder [Unknown]
  - Pain [Not Recovered/Not Resolved]
  - Drug prescribing error [Unknown]
  - Depression [Not Recovered/Not Resolved]
  - Headache [Not Recovered/Not Resolved]
  - Blood cholesterol increased [Unknown]

NARRATIVE: CASE EVENT DATE: 2015
